FAERS Safety Report 7249354-1 (Version None)
Quarter: 2011Q1

REPORT INFORMATION
  Report Type: 
  Country: None (occurrence: None)
  Receive Date: 20110128
  Receipt Date: 20110127
  Transmission Date: 20110831
  Serious: Yes (Hospitalization)
  Sender: FDA-Public Use
  Company Number: PL-ABBOTT-11P-129-0696099-00

PATIENT
  Sex: Male
  Weight: 55 kg

DRUGS (5)
  1. HUMIRA [Suspect]
     Indication: CROHN'S DISEASE
     Dosage: FIRST DOSE 80MG, NEXT DOSES 40 MG
     Route: 058
     Dates: start: 20080530
  2. HUMIRA [Suspect]
     Dates: end: 20080822
  3. HELICID [Concomitant]
     Indication: PRODUCT USED FOR UNKNOWN INDICATION
     Dosage: 20MG DAILY
  4. METYPRED [Suspect]
     Indication: CROHN'S DISEASE
     Dosage: 8MG DAILY
  5. AZATHIOPRINE [Suspect]
     Indication: CROHN'S DISEASE
     Dosage: 150MG DAILY

REACTIONS (1)
  - CARDIAC MYXOMA [None]
